FAERS Safety Report 12402122 (Version 2)
Quarter: 2016Q2

REPORT INFORMATION
  Report Type: Spontaneous
  Country: US (occurrence: US)
  Receive Date: 20160525
  Receipt Date: 20160527
  Transmission Date: 20160815
  Serious: Yes (Other)
  Sender: FDA-Public Use
  Company Number: US-SA-2016SA006873

PATIENT
  Age: 52 Year
  Sex: Female

DRUGS (2)
  1. SOLOSTAR [Concomitant]
     Active Substance: DEVICE
     Indication: DEVICE THERAPY
     Dates: start: 201507, end: 20151231
  2. LANTUS SOLOSTAR [Suspect]
     Active Substance: INSULIN GLARGINE
     Indication: TYPE 2 DIABETES MELLITUS
     Dosage: DOSE:42 UNIT(S)
     Route: 065
     Dates: start: 201507, end: 20151231

REACTIONS (5)
  - Visual impairment [Unknown]
  - Anaphylactic reaction [Unknown]
  - Unevaluable event [Unknown]
  - Blood pressure increased [Unknown]
  - Night sweats [Unknown]

NARRATIVE: CASE EVENT DATE: 201512
